FAERS Safety Report 5682487-X (Version None)
Quarter: 2008Q1

REPORT INFORMATION
  Report Type: 
  Country: None (occurrence: None)
  Receive Date: 20080327
  Receipt Date: 20071130
  Transmission Date: 20080703
  Serious: No
  Sender: FDA-Public Use
  Company Number: US-BRISTOL-MYERS SQUIBB COMPANY-13999479

PATIENT
  Age: 54 Year
  Sex: Male
  Weight: 68 kg

DRUGS (1)
  1. BARACLUDE [Suspect]
     Dates: start: 20071108

REACTIONS (1)
  - HEPATIC ENZYME INCREASED [None]
